FAERS Safety Report 17734089 (Version 1)
Quarter: 2020Q2

REPORT INFORMATION
  Report Type: Spontaneous
  Country: CN (occurrence: CN)
  Receive Date: 20200501
  Receipt Date: 20200501
  Transmission Date: 20200714
  Serious: Yes (Other)
  Sender: FDA-Public Use
  Company Number: CN-ASTRAZENECA-2020SE55982

PATIENT
  Age: 50 Year
  Sex: Female

DRUGS (2)
  1. OLAPARIB. [Suspect]
     Active Substance: OLAPARIB
     Indication: ENDOMETRIAL ADENOCARCINOMA
     Route: 048
  2. OLAPARIB. [Suspect]
     Active Substance: OLAPARIB
     Indication: GENE MUTATION
     Route: 048

REACTIONS (2)
  - Malignant neoplasm progression [Unknown]
  - Intestinal obstruction [Unknown]
